FAERS Safety Report 8152069 (Version 4)
Quarter: 2013Q2

REPORT INFORMATION
  Report Type: Spontaneous
  Country: US (occurrence: US)
  Receive Date: 20110922
  Receipt Date: 20130620
  Transmission Date: 20140414
  Serious: Yes (Other)
  Sender: FDA-Public Use
  Company Number: US-ASTRAZENECA-2011SE12496

PATIENT
  Age: 58 Year
  Sex: Male

DRUGS (7)
  1. SEROQUEL [Suspect]
     Route: 048
     Dates: start: 20060921
  2. SEROQUEL [Suspect]
     Route: 048
     Dates: start: 20090425
  3. FLUOXETINE HCL [Concomitant]
     Dates: start: 20060921
  4. FLUOXETINE HCL [Concomitant]
     Dates: start: 2009
  5. ABILIFY [Concomitant]
     Dates: start: 2009
  6. TRAZODONE [Concomitant]
     Dates: start: 20060921
  7. BACTRIM DS [Concomitant]
     Indication: INFECTION
     Dosage: SULFAMETHOXAZOLE 800/TRIMETH 160MG TAKE 1 TABLET BY MOUTH TWICE A DAY WITH WATER FOR FOURTEEN DAYS
     Route: 048
     Dates: start: 20060921

REACTIONS (3)
  - Diabetic coma [Unknown]
  - Pancreatitis [Unknown]
  - Type 2 diabetes mellitus [Unknown]
